FAERS Safety Report 15842945 (Version 3)
Quarter: 2019Q3

REPORT INFORMATION
  Report Type: Spontaneous
  Country: US (occurrence: US)
  Receive Date: 20190118
  Receipt Date: 20190709
  Transmission Date: 20191004
  Serious: Yes (Other)
  Sender: FDA-Public Use
  Company Number: US-ASTRAZENECA-2018SF26118

PATIENT
  Age: 19023 Day
  Sex: Female

DRUGS (81)
  1. NEXIUM [Suspect]
     Active Substance: ESOMEPRAZOLE MAGNESIUM
     Indication: GASTROOESOPHAGEAL REFLUX DISEASE
     Route: 048
     Dates: start: 20080402, end: 20120216
  2. NEXIUM 24HR [Suspect]
     Active Substance: ESOMEPRAZOLE MAGNESIUM
     Route: 048
  3. DEXILANT [Suspect]
     Active Substance: DEXLANSOPRAZOLE
     Indication: GASTROOESOPHAGEAL REFLUX DISEASE
     Route: 065
     Dates: start: 200807, end: 201706
  4. DEXILANT [Suspect]
     Active Substance: DEXLANSOPRAZOLE
     Indication: GASTROOESOPHAGEAL REFLUX DISEASE
     Route: 065
     Dates: start: 200807, end: 201706
  5. DEXILANT [Suspect]
     Active Substance: DEXLANSOPRAZOLE
     Indication: GASTROOESOPHAGEAL REFLUX DISEASE
     Route: 048
     Dates: start: 20131025
  6. PROTONIX [Suspect]
     Active Substance: PANTOPRAZOLE SODIUM
     Indication: GASTROOESOPHAGEAL REFLUX DISEASE
     Route: 065
     Dates: start: 20100126, end: 20100126
  7. BETAMETHASONE. [Concomitant]
     Active Substance: BETAMETHASONE
  8. HYOSCINE [Concomitant]
     Active Substance: SCOPOLAMINE
  9. PREDNISONE. [Concomitant]
     Active Substance: PREDNISONE
  10. CLOBETASOL [Concomitant]
     Active Substance: CLOBETASOL
  11. AZITHROMYCIN ANHYDROUS. [Concomitant]
     Active Substance: AZITHROMYCIN ANHYDROUS
  12. PROTONIX [Suspect]
     Active Substance: PANTOPRAZOLE SODIUM
     Indication: GASTROOESOPHAGEAL REFLUX DISEASE
     Route: 065
     Dates: start: 200807, end: 201706
  13. PROTONIX [Suspect]
     Active Substance: PANTOPRAZOLE SODIUM
     Indication: GASTROOESOPHAGEAL REFLUX DISEASE
     Dosage: GENERIC PANTOPRAZOLE
     Route: 065
  14. SPIRONOLACTONE. [Concomitant]
     Active Substance: SPIRONOLACTONE
  15. HYDROQUINONE. [Concomitant]
     Active Substance: HYDROQUINONE
  16. ACETAMINOPHEN. [Concomitant]
     Active Substance: ACETAMINOPHEN
  17. CYCLOBENZAPRINE. [Concomitant]
     Active Substance: CYCLOBENZAPRINE
  18. PROPOXYPHENE. [Concomitant]
     Active Substance: PROPOXYPHENE
  19. HYOSCYAMINE. [Concomitant]
     Active Substance: HYOSCYAMINE
  20. MIRTAZAPINE. [Concomitant]
     Active Substance: MIRTAZAPINE
  21. NAPROXEN. [Concomitant]
     Active Substance: NAPROXEN
  22. METHOCARBAMOL. [Concomitant]
     Active Substance: METHOCARBAMOL
  23. METHYLPREDNISOLONE. [Concomitant]
     Active Substance: METHYLPREDNISOLONE
  24. DEXILANT [Suspect]
     Active Substance: DEXLANSOPRAZOLE
     Indication: GASTROOESOPHAGEAL REFLUX DISEASE
     Route: 048
     Dates: start: 20131025
  25. PROTONIX [Suspect]
     Active Substance: PANTOPRAZOLE SODIUM
     Indication: GASTROOESOPHAGEAL REFLUX DISEASE
     Dosage: GENERIC PANTOPRAZOLE
     Route: 065
  26. PROMETHAZINE [Concomitant]
     Active Substance: PROMETHAZINE HYDROCHLORIDE
  27. MIRTAZAPINE. [Concomitant]
     Active Substance: MIRTAZAPINE
  28. TERBINAFINE. [Concomitant]
     Active Substance: TERBINAFINE
  29. PROMETHAZINE [Concomitant]
     Active Substance: PROMETHAZINE HYDROCHLORIDE
  30. PREDNISONE. [Concomitant]
     Active Substance: PREDNISONE
  31. TRIAMTERENE. [Concomitant]
     Active Substance: TRIAMTERENE
  32. ALLEGRA-D [Concomitant]
     Active Substance: FEXOFENADINE\PSEUDOEPHEDRINE
  33. NEXIUM [Suspect]
     Active Substance: ESOMEPRAZOLE MAGNESIUM
     Indication: GASTROOESOPHAGEAL REFLUX DISEASE
     Route: 048
     Dates: start: 200807, end: 201706
  34. NEXIUM [Suspect]
     Active Substance: ESOMEPRAZOLE MAGNESIUM
     Indication: GASTROOESOPHAGEAL REFLUX DISEASE
     Route: 048
     Dates: start: 20080402, end: 20120216
  35. PREVACID [Suspect]
     Active Substance: LANSOPRAZOLE
     Route: 065
  36. PROPOXYPHEN [Concomitant]
  37. CIPROFLOXACIN. [Concomitant]
     Active Substance: CIPROFLOXACIN
  38. HYDROXYZINE [Concomitant]
     Active Substance: HYDROXYZINE HYDROCHLORIDE
  39. SPIRONOLACTONE. [Concomitant]
     Active Substance: SPIRONOLACTONE
  40. AMOXICILLINE [Concomitant]
     Active Substance: AMOXICILLIN
  41. NEXIUM [Suspect]
     Active Substance: ESOMEPRAZOLE MAGNESIUM
     Indication: GASTROOESOPHAGEAL REFLUX DISEASE
     Route: 048
     Dates: start: 20110206
  42. DEXILANT [Suspect]
     Active Substance: DEXLANSOPRAZOLE
     Indication: GASTROOESOPHAGEAL REFLUX DISEASE
     Route: 065
     Dates: start: 20130909, end: 20141205
  43. PROTONIX [Suspect]
     Active Substance: PANTOPRAZOLE SODIUM
     Indication: GASTROOESOPHAGEAL REFLUX DISEASE
     Route: 065
     Dates: start: 20101024, end: 20101124
  44. CLOBETASOL [Concomitant]
     Active Substance: CLOBETASOL
  45. AZITHROMYCIN ANHYDROUS. [Concomitant]
     Active Substance: AZITHROMYCIN ANHYDROUS
  46. CIPROFLOXACIN. [Concomitant]
     Active Substance: CIPROFLOXACIN
  47. ESTRADIOL. [Concomitant]
     Active Substance: ESTRADIOL
  48. CABERGOLINE. [Concomitant]
     Active Substance: CABERGOLINE
  49. NITROFURANTOIN. [Concomitant]
     Active Substance: NITROFURANTOIN
  50. IBUPROFEN. [Concomitant]
     Active Substance: IBUPROFEN
  51. MUCINEX [Concomitant]
     Active Substance: GUAIFENESIN
  52. FAMOTIDINE. [Concomitant]
     Active Substance: FAMOTIDINE
  53. NEXIUM [Suspect]
     Active Substance: ESOMEPRAZOLE MAGNESIUM
     Indication: GASTROOESOPHAGEAL REFLUX DISEASE
     Route: 048
     Dates: start: 20110206
  54. DEXILANT [Suspect]
     Active Substance: DEXLANSOPRAZOLE
     Indication: GASTROOESOPHAGEAL REFLUX DISEASE
     Route: 065
     Dates: start: 20130909, end: 20141205
  55. PROTONIX [Suspect]
     Active Substance: PANTOPRAZOLE SODIUM
     Indication: GASTROOESOPHAGEAL REFLUX DISEASE
     Route: 065
     Dates: start: 20100126, end: 20100126
  56. PROTONIX [Suspect]
     Active Substance: PANTOPRAZOLE SODIUM
     Indication: GASTROOESOPHAGEAL REFLUX DISEASE
     Route: 065
     Dates: start: 20101024, end: 20101124
  57. ESTRADIOL. [Concomitant]
     Active Substance: ESTRADIOL
  58. SUMATRIPTAN. [Concomitant]
     Active Substance: SUMATRIPTAN
  59. PENICILLIN NOS [Concomitant]
     Active Substance: PENICILLIN
  60. NASONEX [Concomitant]
     Active Substance: MOMETASONE FUROATE
  61. METRONIDAZOLE. [Concomitant]
     Active Substance: METRONIDAZOLE
  62. PENICILLINE [Concomitant]
     Active Substance: PENICILLIN G
  63. CIPROFLOXACIN. [Concomitant]
     Active Substance: CIPROFLOXACIN
  64. ONDANSETRON [Concomitant]
     Active Substance: ONDANSETRON
  65. TUMS [Concomitant]
     Active Substance: CALCIUM CARBONATE
  66. NEXIUM [Suspect]
     Active Substance: ESOMEPRAZOLE MAGNESIUM
     Indication: GASTROOESOPHAGEAL REFLUX DISEASE
     Route: 048
     Dates: start: 200807, end: 201706
  67. PRILOSEC [Suspect]
     Active Substance: OMEPRAZOLE MAGNESIUM
     Route: 048
  68. PRILOSEC OTC [Suspect]
     Active Substance: OMEPRAZOLE MAGNESIUM
     Route: 048
  69. IOPHEN [Concomitant]
  70. METRONIDAZOLE. [Concomitant]
     Active Substance: METRONIDAZOLE
  71. SUMATRIPTAN. [Concomitant]
     Active Substance: SUMATRIPTAN
  72. TRAMADOL. [Concomitant]
     Active Substance: TRAMADOL
  73. LEVOFLOXACIN. [Concomitant]
     Active Substance: LEVOFLOXACIN
  74. BENZONATATE. [Concomitant]
     Active Substance: BENZONATATE
  75. VITAMIN D [Concomitant]
     Active Substance: VITAMIN D NOS
  76. PREVACID 24 HR [Suspect]
     Active Substance: LANSOPRAZOLE
     Route: 065
  77. PROTONIX [Suspect]
     Active Substance: PANTOPRAZOLE SODIUM
     Indication: GASTROOESOPHAGEAL REFLUX DISEASE
     Route: 065
     Dates: start: 200807, end: 201706
  78. PENICILLIN NOS [Concomitant]
     Active Substance: PENICILLIN
  79. CLOBETASOL [Concomitant]
     Active Substance: CLOBETASOL
  80. TAMIFLU [Concomitant]
     Active Substance: OSELTAMIVIR PHOSPHATE
  81. AMLODIPINE [Concomitant]
     Active Substance: AMLODIPINE BESYLATE

REACTIONS (1)
  - Chronic kidney disease [Not Recovered/Not Resolved]

NARRATIVE: CASE EVENT DATE: 20161004
